FAERS Safety Report 10879003 (Version 1)
Quarter: 2015Q1

REPORT INFORMATION
  Report Type: Spontaneous
  Country: US (occurrence: None)
  Receive Date: 20150225
  Receipt Date: 20150225
  Transmission Date: 20150721
  Serious: Yes (Hospitalization)
  Sender: FDA-Public Use
  Company Number: 2753827

PATIENT
  Age: 64 Year
  Sex: Female

DRUGS (1)
  1. METHOTREXATE [Suspect]
     Active Substance: METHOTREXATE
     Indication: GRANULOMATOSIS WITH POLYANGIITIS

REACTIONS (7)
  - Toxicity to various agents [None]
  - Anaemia [None]
  - Swelling face [None]
  - Respiratory failure [None]
  - Leukopenia [None]
  - Stomatitis [None]
  - Haemoptysis [None]
